FAERS Safety Report 5942101-2 (Version None)
Quarter: 2008Q4

REPORT INFORMATION
  Report Type: 
  Country: None (occurrence: None)
  Receive Date: 20081105
  Receipt Date: 20081030
  Transmission Date: 20090506
  Serious: Yes (Life-Threatening, Hospitalization)
  Sender: FDA-Public Use
  Company Number: US-CELGENEUS-163-C5013-08020717

PATIENT
  Sex: Female
  Weight: 81.17 kg

DRUGS (10)
  1. REVLIMID [Suspect]
     Indication: DIFFUSE LARGE B-CELL LYMPHOMA
     Route: 048
     Dates: start: 20080122, end: 20080205
  2. REVLIMID [Suspect]
     Route: 048
     Dates: start: 20080219, end: 20080304
  3. REVLIMID [Suspect]
     Route: 048
     Dates: start: 20080319
  4. AEROBID [Concomitant]
     Indication: ASTHMA
     Dosage: 2 PUFFS
     Route: 048
  5. CALCIUM CARBONATE [Concomitant]
     Indication: MINERAL SUPPLEMENTATION
     Route: 048
  6. DIOVAN [Concomitant]
     Indication: HYPERTENSION
     Route: 048
  7. VITAMIN D [Concomitant]
     Dosage: 400 UNITS
     Route: 048
  8. SINGULAIR [Concomitant]
     Indication: ASTHMA
     Route: 048
  9. ASPIRIN [Concomitant]
     Indication: THROMBOSIS PROPHYLAXIS
     Route: 048
     Dates: start: 20080122
  10. CARTIA XT [Concomitant]
     Indication: CORONARY ARTERY DISEASE
     Route: 048

REACTIONS (2)
  - ASTHMA [None]
  - NEUTROPENIA [None]
